FAERS Safety Report 7796938-8 (Version None)
Quarter: 2011Q4

REPORT INFORMATION
  Report Type: 
  Country: None (occurrence: None)
  Receive Date: 20111005
  Receipt Date: 20110927
  Transmission Date: 20120403
  Serious: Yes (Other)
  Sender: FDA-Public Use
  Company Number: VE-AMGEN-VENSP2011040863

PATIENT
  Age: 26 Year
  Sex: Female

DRUGS (1)
  1. ENBREL [Suspect]
     Indication: RHEUMATOID ARTHRITIS
     Dosage: UNK
     Route: 065
     Dates: start: 20091009, end: 20110628

REACTIONS (5)
  - PLACENTAL DISORDER [None]
  - LIGAMENT SPRAIN [None]
  - ABDOMINAL PAIN [None]
  - FALL [None]
  - VAGINAL HAEMORRHAGE [None]
